FAERS Safety Report 7677990-7 (Version None)
Quarter: 2011Q3

REPORT INFORMATION
  Report Type: 
  Country: None (occurrence: None)
  Receive Date: 20110811
  Receipt Date: 20110809
  Transmission Date: 20111222
  Serious: Yes (Hospitalization)
  Sender: FDA-Public Use
  Company Number: US-GLAXOSMITHKLINE-A0940126A

PATIENT
  Sex: Male

DRUGS (2)
  1. AVANDAMET [Suspect]
     Indication: TYPE 2 DIABETES MELLITUS
     Route: 048
     Dates: start: 20030528, end: 20041018
  2. AVANDIA [Suspect]
     Indication: TYPE 2 DIABETES MELLITUS
     Dosage: 4MG PER DAY
     Route: 048
     Dates: start: 20020628, end: 20030101

REACTIONS (6)
  - VIITH NERVE PARALYSIS [None]
  - ELECTROCARDIOGRAM ST SEGMENT ABNORMAL [None]
  - CEREBROVASCULAR ACCIDENT [None]
  - CHEST PAIN [None]
  - PERICARDIAL EFFUSION [None]
  - CARDIAC DISORDER [None]
